FAERS Safety Report 4550367-9 (Version None)
Quarter: 2004Q4

REPORT INFORMATION
  Report Type: 
  Country: None (occurrence: None)
  Receive Date: 20041227
  Receipt Date: 20041012
  Transmission Date: 20050328
  Serious: No
  Sender: FDA-Public Use
  Company Number: US095115

PATIENT
  Age: 86 Year
  Sex: Female

DRUGS (2)
  1. ARANESP [Suspect]
     Indication: ANAEMIA OF MALIGNANT DISEASE
     Dosage: 100 MCG, 1 IN 1 WEEKS
     Dates: start: 20040801
  2. WARFARIN SODIUM [Concomitant]

REACTIONS (1)
  - COAGULATION TIME ABNORMAL [None]
